FAERS Safety Report 19070668 (Version 1)
Quarter: 2021Q1

REPORT INFORMATION
  Report Type: Report from Study
  Country: None (occurrence: US)
  Receive Date: 20210330
  Receipt Date: 20210330
  Transmission Date: 20210420
  Serious: Yes (Hospitalization, Other)
  Sender: FDA-Public Use
  Company Number: US-ABBVIE-21K-163-3794260-00

PATIENT
  Sex: Male
  Weight: 68.1 kg

DRUGS (2)
  1. HUMIRA [Suspect]
     Active Substance: ADALIMUMAB
     Indication: CROHN^S DISEASE
     Route: 058
     Dates: start: 2013, end: 2013
  2. HUMIRA [Suspect]
     Active Substance: ADALIMUMAB
     Route: 058
     Dates: start: 2014

REACTIONS (7)
  - Therapeutic response shortened [Not Recovered/Not Resolved]
  - Gastric disorder [Recovered/Resolved]
  - Joint swelling [Recovered/Resolved]
  - Abdominal pain upper [Recovered/Resolved]
  - Arthralgia [Not Recovered/Not Resolved]
  - Joint effusion [Recovered/Resolved]
  - Intestinal obstruction [Recovered/Resolved]

NARRATIVE: CASE EVENT DATE: 2013
